FAERS Safety Report 12835091 (Version 1)
Quarter: 2016Q4

REPORT INFORMATION
  Report Type: Report from Study
  Country: MX (occurrence: MX)
  Receive Date: 20161010
  Receipt Date: 20161010
  Transmission Date: 20170207
  Serious: Yes (Other)
  Sender: FDA-Public Use
  Company Number: MX-ELI_LILLY_AND_COMPANY-MX201603001893

PATIENT
  Age: 89 Year
  Sex: Female
  Weight: 40 kg

DRUGS (7)
  1. HALOPERIDOL. [Concomitant]
     Active Substance: HALOPERIDOL
     Indication: SENILE DEMENTIA
     Dosage: 1.25 MG, EACH EVENING
  2. CLONAZEPAM. [Concomitant]
     Active Substance: CLONAZEPAM
     Dosage: UNK DF, UNK
  3. IBUPROFEN. [Concomitant]
     Active Substance: IBUPROFEN
  4. FORTEO [Suspect]
     Active Substance: TERIPARATIDE
     Indication: WRIST FRACTURE
     Dosage: UNK, QD
     Route: 058
     Dates: start: 201603, end: 20160509
  5. PARACETAMOL [Concomitant]
     Active Substance: ACETAMINOPHEN
  6. OMEPRAZOLE. [Concomitant]
     Active Substance: OMEPRAZOLE
  7. FORTEO [Suspect]
     Active Substance: TERIPARATIDE
     Indication: OSTEOPOROSIS

REACTIONS (7)
  - Gastrointestinal neoplasm [Unknown]
  - Faeces discoloured [Unknown]
  - Anaemia [Unknown]
  - Ulcer [Unknown]
  - Urinary tract infection [Unknown]
  - Gastritis [Unknown]
  - Gastrointestinal haemorrhage [Unknown]

NARRATIVE: CASE EVENT DATE: 201608
